FAERS Safety Report 18221449 (Version 1)
Quarter: 2020Q3

REPORT INFORMATION
  Report Type: Spontaneous
  Country: US (occurrence: US)
  Receive Date: 20200902
  Receipt Date: 20200902
  Transmission Date: 20201103
  Serious: No
  Sender: FDA-Public Use
  Company Number: US-PFIZER INC-2020338351

PATIENT
  Age: 63 Year
  Sex: Female
  Weight: 85.28 kg

DRUGS (6)
  1. FLEXERIL [CEFIXIME] [Concomitant]
     Active Substance: CEFIXIME
     Indication: MUSCLE SPASMS
     Dosage: 10 MG, 1X/DAY
  2. FAMOTIDINE. [Concomitant]
     Active Substance: FAMOTIDINE
     Dosage: 40 MG, 1X/DAY
  3. LINZESS [Concomitant]
     Active Substance: LINACLOTIDE
     Dosage: 145 UG, 1X/DAY
  4. PREGABALIN. [Suspect]
     Active Substance: PREGABALIN
     Indication: PAIN
  5. DULOXETINE. [Concomitant]
     Active Substance: DULOXETINE
     Indication: HEREDITARY MOTOR AND SENSORY NEUROPATHY
     Dosage: 20 MG, 1X/DAY
  6. PREGABALIN. [Suspect]
     Active Substance: PREGABALIN
     Indication: HEREDITARY MOTOR AND SENSORY NEUROPATHY
     Dosage: 100 MG, 2X/DAY
     Dates: end: 2020

REACTIONS (2)
  - Drug ineffective [Unknown]
  - Peripheral swelling [Recovered/Resolved]

NARRATIVE: CASE EVENT DATE: 202006
